FAERS Safety Report 6344645-0 (Version None)
Quarter: 2009Q3

REPORT INFORMATION
  Report Type: 
  Country: None (occurrence: None)
  Receive Date: 20090903
  Receipt Date: 20090826
  Transmission Date: 20100115
  Serious: Yes (Hospitalization)
  Sender: FDA-Public Use
  Company Number: 2009-03201

PATIENT
  Age: 50 Year
  Sex: Female
  Weight: 74.8 kg

DRUGS (10)
  1. VELCADE [Suspect]
     Indication: HEAD AND NECK CANCER
     Dosage: 1.3 MG/M2, INTRAVENOUS
     Route: 042
     Dates: start: 20090713, end: 20090803
  2. CISPLATIN [Suspect]
     Indication: HEAD AND NECK CANCER
     Dosage: 30 MG/M2, INTRAVENOUS
     Route: 042
     Dates: start: 20090713, end: 20090803
  3. METHYLPREDNISOLONE [Concomitant]
  4. COMPAZINE [Concomitant]
  5. ZOFRAN [Concomitant]
  6. HYDROCODONE BITARTRATE [Concomitant]
  7. TYLENOL W/ CODEINE [Concomitant]
  8. NEXIUM [Concomitant]
  9. CIPROFLOXACIN (CIPROFLOXACIN) [Concomitant]
  10. ARTIFICIAL TEARS [Concomitant]

REACTIONS (13)
  - CHEST PAIN [None]
  - DEHYDRATION [None]
  - DIZZINESS [None]
  - DYSPHAGIA [None]
  - GASTROOESOPHAGEAL REFLUX DISEASE [None]
  - HAEMATOCRIT DECREASED [None]
  - HAEMOGLOBIN DECREASED [None]
  - NAUSEA [None]
  - ODYNOPHAGIA [None]
  - OESOPHAGEAL CANDIDIASIS [None]
  - PLATELET COUNT DECREASED [None]
  - VOMITING [None]
  - WHITE BLOOD CELL COUNT DECREASED [None]
